FAERS Safety Report 9730206 (Version 3)
Quarter: 2014Q1

REPORT INFORMATION
  Report Type: Spontaneous
  Country: NL (occurrence: NL)
  Receive Date: 20131204
  Receipt Date: 20140228
  Transmission Date: 20141002
  Serious: Yes (Death, Hospitalization, Other)
  Sender: FDA-Public Use
  Company Number: NL-ELI_LILLY_AND_COMPANY-NL201312000404

PATIENT
  Sex: Male

DRUGS (5)
  1. HUMULINE NPH [Suspect]
     Indication: PRODUCT USED FOR UNKNOWN INDICATION
     Dosage: UNK
     Route: 065
     Dates: start: 20130828
  2. LANOXIN [Concomitant]
  3. GLIPIZIDE [Concomitant]
  4. ACENOCOUMAROL [Concomitant]
  5. OMEPRAZOL                          /00661201/ [Concomitant]

REACTIONS (3)
  - Cardiogenic shock [Fatal]
  - Atrial fibrillation [Unknown]
  - Pyrexia [Unknown]
